FAERS Safety Report 15318629 (Version 1)
Quarter: 2018Q3

REPORT INFORMATION
  Report Type: Spontaneous
  Country: US (occurrence: US)
  Receive Date: 20180817
  Receipt Date: 20180817
  Transmission Date: 20181010
  Serious: No
  Sender: FDA-Public Use
  Company Number: None

PATIENT
  Age: 69 Year
  Sex: Male

DRUGS (1)
  1. CREST GUM DETOXIFY [Suspect]
     Active Substance: STANNOUS FLUORIDE

REACTIONS (7)
  - Dysphagia [None]
  - Burning sensation [None]
  - Dyspnoea [None]
  - Throat irritation [None]
  - Oropharyngeal pain [None]
  - Gingival discomfort [None]
  - Fear [None]

NARRATIVE: CASE EVENT DATE: 20180729
